FAERS Safety Report 8509656-5 (Version None)
Quarter: 2012Q3

REPORT INFORMATION
  Report Type: 
  Country: None (occurrence: None)
  Receive Date: 20120713
  Receipt Date: 20120703
  Transmission Date: 20120928
  Serious: Yes (Life-Threatening, Hospitalization, Other)
  Sender: FDA-Public Use
  Company Number: US-BRISTOL-MYERS SQUIBB COMPANY-16742405

PATIENT
  Age: 90 Year
  Sex: Female
  Weight: 52 kg

DRUGS (17)
  1. COLACE [Concomitant]
  2. COLECALCIFEROL [Concomitant]
  3. CARDIZEM [Concomitant]
  4. IMODIUM MULTI-SYMPTOM RELIEF [Concomitant]
     Dosage: TAB
     Route: 048
  5. MULTI-VITAMINS [Concomitant]
     Route: 048
  6. FLORASTOR [Concomitant]
     Dosage: TAB
     Route: 048
  7. FEXOFENADINE HCL [Concomitant]
  8. FISH OIL [Concomitant]
  9. TEMAZEPAM [Concomitant]
  10. ASPIRIN [Concomitant]
  11. COUMADIN [Suspect]
  12. PRADAXA [Suspect]
     Indication: ATRIAL FIBRILLATION
     Dosage: CAPS
     Route: 048
     Dates: start: 20120120
  13. ASCORBIC ACID [Concomitant]
     Dosage: TAB
     Route: 048
  14. HYDROCODONE BITARTRATE + ACETAMINOPHEN [Concomitant]
  15. ROSUVASTATIN [Concomitant]
  16. LACTASE [Concomitant]
  17. PROTONIX [Concomitant]

REACTIONS (5)
  - DYSPNOEA [None]
  - MEDICATION ERROR [None]
  - CHOLELITHIASIS [None]
  - HAEMATURIA [None]
  - PERICARDIAL HAEMORRHAGE [None]
